FAERS Safety Report 8508376-0 (Version None)
Quarter: 2012Q3

REPORT INFORMATION
  Report Type: 
  Country: None (occurrence: None)
  Receive Date: 20120713
  Receipt Date: 20120709
  Transmission Date: 20120928
  Serious: Yes (Other)
  Sender: FDA-Public Use
  Company Number: PHEH2012US004836

PATIENT
  Sex: Female

DRUGS (1)
  1. GILENYA [Suspect]
     Indication: MULTIPLE SCLEROSIS
     Dosage: 0.5 MG, DAILY
     Route: 048
     Dates: start: 20110303

REACTIONS (5)
  - LOSS OF CONSCIOUSNESS [None]
  - CENTRAL NERVOUS SYSTEM LESION [None]
  - FALL [None]
  - JOINT INJURY [None]
  - LABORATORY TEST ABNORMAL [None]
